FAERS Safety Report 26194544 (Version 1)
Quarter: 2025Q4

REPORT INFORMATION
  Report Type: Report from Study
  Country: US (occurrence: US)
  Receive Date: 20251224
  Receipt Date: 20251224
  Transmission Date: 20260118
  Serious: Yes (Other)
  Sender: ALEXION PHARMACEUTICALS
  Company Number: US-ASTRAZENECA-202512NAM015566US

PATIENT
  Sex: Female

DRUGS (1)
  1. STRENSIQ [Suspect]
     Active Substance: ASFOTASE ALFA
     Indication: Phosphorus metabolism disorder
     Dosage: 160 MILLIGRAM, TIW
     Route: 065

REACTIONS (6)
  - Fatigue [Unknown]
  - Myalgia [Unknown]
  - Tooth disorder [Unknown]
  - Complicated fracture [Unknown]
  - Eye pain [Unknown]
  - Eye swelling [Unknown]
